FAERS Safety Report 6581888-5 (Version None)
Quarter: 2010Q1

REPORT INFORMATION
  Report Type: 
  Country: None (occurrence: None)
  Receive Date: 20100212
  Receipt Date: 20100212
  Transmission Date: 20100710
  Serious: Yes (Hospitalization, Disabling)
  Sender: FDA-Public Use
  Company Number: None

PATIENT
  Age: 62 Year
  Sex: Male

DRUGS (2)
  1. METHADONE HCL [Suspect]
     Indication: PAIN
     Dosage: 10 MG TID PO
     Route: 048
     Dates: start: 20081205
  2. GABAPENTIN [Suspect]
     Indication: PAIN
     Dosage: 1200 MG TID PO
     Route: 048
     Dates: start: 20090106, end: 20091110

REACTIONS (3)
  - FALL [None]
  - RHABDOMYOLYSIS [None]
  - SEDATION [None]
